FAERS Safety Report 5780347-7 (Version None)
Quarter: 2008Q2

REPORT INFORMATION
  Report Type: 
  Country: None (occurrence: None)
  Receive Date: 20080620
  Receipt Date: 20080605
  Transmission Date: 20081010
  Serious: Yes (Hospitalization)
  Sender: FDA-Public Use
  Company Number: B0523443A

PATIENT
  Age: 11 Year
  Sex: Male

DRUGS (8)
  1. MERCAPTOPURINE [Suspect]
     Route: 048
  2. THIOGUANINE [Suspect]
     Route: 048
  3. L-ASPARAGINASE [Suspect]
     Route: 065
  4. PREDNISOLONE [Concomitant]
     Route: 048
  5. METHOTREXATE [Concomitant]
     Route: 065
  6. VINCRISTINE [Concomitant]
     Route: 042
  7. HYDROCORTISONE [Concomitant]
     Route: 065
  8. CYTARABINE [Concomitant]
     Route: 065

REACTIONS (7)
  - ABDOMINAL PAIN [None]
  - ABDOMINAL PAIN UPPER [None]
  - BLOOD AMYLASE INCREASED [None]
  - LIPASE INCREASED [None]
  - NAUSEA [None]
  - PANCREATITIS [None]
  - VOMITING [None]
